FAERS Safety Report 7897549-6 (Version None)
Quarter: 2011Q4

REPORT INFORMATION
  Report Type: 
  Country: None (occurrence: None)
  Receive Date: 20111107
  Receipt Date: 20111027
  Transmission Date: 20120403
  Serious: Yes (Other)
  Sender: FDA-Public Use
  Company Number: CA-JNJFOC-20110909827

PATIENT
  Age: 55 Year
  Sex: Female
  Weight: 72.58 kg

DRUGS (3)
  1. ALL OTHER THERAPEUTIC DRUG [Concomitant]
     Indication: PRODUCT USED FOR UNKNOWN INDICATION
     Route: 065
  2. NICODERM [Suspect]
     Route: 062
  3. NICODERM [Suspect]
     Indication: SMOKING CESSATION THERAPY
     Dosage: USE ONE PATCH ONE TIME
     Route: 062
     Dates: start: 20110901, end: 20110901

REACTIONS (4)
  - BLISTER [None]
  - APPLICATION SITE PAIN [None]
  - APPLICATION SITE EROSION [None]
  - PRODUCT QUALITY ISSUE [None]
